FAERS Safety Report 7997071-2 (Version None)
Quarter: 2011Q4

REPORT INFORMATION
  Report Type: 
  Country: None (occurrence: None)
  Receive Date: 20111216
  Receipt Date: 20111209
  Transmission Date: 20120403
  Serious: Yes (Hospitalization)
  Sender: FDA-Public Use
  Company Number: 1130990

PATIENT
  Age: 61 Year
  Sex: Female
  Weight: 61 kg

DRUGS (5)
  1. CYCLOPHOSPHAMIDE [Suspect]
     Indication: PRODUCT USED FOR UNKNOWN INDICATION
     Dates: start: 20110623, end: 20110714
  2. EPIRUBICIN HYDROCHLORIDE [Suspect]
     Indication: PRODUCT USED FOR UNKNOWN INDICATION
     Dates: start: 20110623, end: 20110714
  3. FILGRASTIM [Suspect]
     Indication: PRODUCT USED FOR UNKNOWN INDICATION
     Dates: start: 20110623, end: 20110714
  4. VALPROATE SODIUM [Concomitant]
  5. LAMICTAL [Concomitant]

REACTIONS (2)
  - CONVULSION [None]
  - CONDITION AGGRAVATED [None]
